FAERS Safety Report 23756755 (Version 1)
Quarter: 2024Q2

REPORT INFORMATION
  Report Type: Spontaneous
  Country: CA (occurrence: CA)
  Receive Date: 20240418
  Receipt Date: 20240418
  Transmission Date: 20240715
  Serious: Yes (Death, Life-Threatening, Hospitalization, Other)
  Sender: FDA-Public Use
  Company Number: CA-BRACCO-2024CA01994

PATIENT
  Age: 71 Year
  Sex: Female

DRUGS (3)
  1. SULFUR HEXAFLUORIDE [Suspect]
     Active Substance: SULFUR HEXAFLUORIDE
     Indication: Echocardiogram
     Dosage: 1.8 ML, SINGLE
     Route: 042
     Dates: start: 20240409, end: 20240409
  2. SULFUR HEXAFLUORIDE [Suspect]
     Active Substance: SULFUR HEXAFLUORIDE
     Indication: Echocardiogram
     Dosage: 1.8 ML, SINGLE
     Route: 042
     Dates: start: 20240409, end: 20240409
  3. SULFUR HEXAFLUORIDE [Suspect]
     Active Substance: SULFUR HEXAFLUORIDE
     Indication: Echocardiogram
     Dosage: 1.8 ML, SINGLE
     Route: 042
     Dates: start: 20240409, end: 20240409

REACTIONS (5)
  - Unresponsive to stimuli [Fatal]
  - Cyanosis [Fatal]
  - Confusional state [Fatal]
  - Flushing [Fatal]
  - Nausea [Fatal]

NARRATIVE: CASE EVENT DATE: 20240409
